FAERS Safety Report 9220719 (Version 1)
Quarter: 2013Q2

REPORT INFORMATION
  Report Type: Spontaneous
  Country: US (occurrence: US)
  Receive Date: 20130409
  Receipt Date: 20130409
  Transmission Date: 20140414
  Serious: No
  Sender: FDA-Public Use
  Company Number: US-009507513-1303USA013149

PATIENT
  Age: 20 Year
  Sex: Female
  Weight: 73.47 kg

DRUGS (2)
  1. NEXPLANON [Suspect]
     Dosage: UNK
     Dates: start: 20120808, end: 20130320
  2. NEXPLANON [Suspect]
     Dosage: UNK
     Dates: start: 20130320

REACTIONS (2)
  - Device kink [Unknown]
  - Implant site pruritus [Unknown]
